FAERS Safety Report 9788529 (Version 2)
Quarter: 2013Q4

REPORT INFORMATION
  Report Type: Spontaneous
  Country: FR (occurrence: FR)
  Receive Date: 20131230
  Receipt Date: 20131230
  Transmission Date: 20140711
  Serious: Yes (Hospitalization)
  Sender: FDA-Public Use
  Company Number: FR-TEVA-452495ISR

PATIENT
  Age: 61 Year
  Sex: Male

DRUGS (8)
  1. CISPLATIN TEVA 1 MG/ML [Suspect]
     Route: 041
     Dates: start: 20131009, end: 20131009
  2. ERBITUX [Suspect]
     Route: 042
     Dates: start: 20131009, end: 20131009
  3. LEVOTHYROX [Concomitant]
  4. CORDARONE [Concomitant]
  5. KARDEGIC [Concomitant]
  6. CRESTOR [Concomitant]
  7. DUROGESIC [Concomitant]
  8. FLUOROURACIL [Concomitant]
     Dates: start: 20131009

REACTIONS (11)
  - Renal tubular disorder [Not Recovered/Not Resolved]
  - Hypomagnesaemia [Not Recovered/Not Resolved]
  - Hypokalaemia [Not Recovered/Not Resolved]
  - Lung disorder [Not Recovered/Not Resolved]
  - Renal tubular necrosis [Not Recovered/Not Resolved]
  - Neutropenia [Not Recovered/Not Resolved]
  - Agranulocytosis [Recovered/Resolved]
  - Pyrexia [None]
  - Hypoxia [None]
  - Blood phosphorus decreased [None]
  - Nephropathy toxic [None]
